FAERS Safety Report 14141710 (Version 1)
Quarter: 2017Q4

REPORT INFORMATION
  Report Type: Spontaneous
  Country: US (occurrence: US)
  Receive Date: 20171030
  Receipt Date: 20171030
  Transmission Date: 20180321
  Serious: Yes (Other)
  Sender: FDA-Public Use
  Company Number: US-GLAXOSMITHKLINE-US2017163704

PATIENT
  Age: 36 Year
  Sex: Female

DRUGS (11)
  1. BENLYSTA [Suspect]
     Active Substance: BELIMUMAB
     Indication: SYSTEMIC LUPUS ERYTHEMATOSUS
     Dosage: 640 MG, CYC
     Route: 042
     Dates: start: 201409
  2. REXULTI [Concomitant]
     Active Substance: BREXPIPRAZOLE
  3. TOPAMAX [Concomitant]
     Active Substance: TOPIRAMATE
  4. SONATA [Concomitant]
     Active Substance: ZALEPLON
  5. WELLBUTRIN [Concomitant]
     Active Substance: BUPROPION HYDROCHLORIDE
  6. PROVIGIL [Concomitant]
     Active Substance: MODAFINIL
  7. VYVANSE [Concomitant]
     Active Substance: LISDEXAMFETAMINE DIMESYLATE
  8. IMURAN [Concomitant]
     Active Substance: AZATHIOPRINE
  9. PLAQUENIL [Concomitant]
     Active Substance: HYDROXYCHLOROQUINE SULFATE
  10. DOXEPIN [Concomitant]
     Active Substance: DOXEPIN
  11. NEURONTIN [Concomitant]
     Active Substance: GABAPENTIN

REACTIONS (5)
  - Periarthritis [Recovered/Resolved]
  - Shoulder operation [Recovered/Resolved]
  - Articular calcification [Recovered/Resolved]
  - Arthroscopy [Recovered/Resolved]
  - Nausea [Not Recovered/Not Resolved]

NARRATIVE: CASE EVENT DATE: 201506
